FAERS Safety Report 6917906-1 (Version None)
Quarter: 2010Q3

REPORT INFORMATION
  Report Type: 
  Country: None (occurrence: None)
  Receive Date: 20100810
  Receipt Date: 20100706
  Transmission Date: 20110219
  Serious: No
  Sender: FDA-Public Use
  Company Number: CA-GENENTECH-304143

PATIENT
  Sex: Female
  Weight: 74 kg

DRUGS (4)
  1. XOLAIR [Suspect]
     Indication: ASTHMA
     Dosage: 150 MG, 1/MONTH
     Route: 058
     Dates: start: 20090826
  2. XOLAIR [Suspect]
     Dosage: 150 MG, 1/MONTH
     Route: 058
     Dates: start: 20100309
  3. PREDNISONE [Concomitant]
     Indication: PRODUCT USED FOR UNKNOWN INDICATION
     Dosage: 15 MG, QD
  4. QVAR 40 [Concomitant]
     Indication: PRODUCT USED FOR UNKNOWN INDICATION

REACTIONS (7)
  - ASTHMA [None]
  - CHEST DISCOMFORT [None]
  - DYSPNOEA [None]
  - QUALITY OF LIFE DECREASED [None]
  - SKIN ATROPHY [None]
  - SKIN LACERATION [None]
  - WHEEZING [None]
